FAERS Safety Report 23123712 (Version 4)
Quarter: 2023Q4

REPORT INFORMATION
  Report Type: Report from Study
  Country: GB (occurrence: GB)
  Receive Date: 20231030
  Receipt Date: 20231212
  Transmission Date: 20240110
  Serious: Yes (Other)
  Sender: FDA-Public Use
  Company Number: GB-UCBSA-2023051280

PATIENT
  Sex: Female

DRUGS (1)
  1. CERTOLIZUMAB PEGOL [Suspect]
     Active Substance: CERTOLIZUMAB PEGOL
     Indication: Rheumatoid arthritis
     Dosage: 200 MILLIGRAM, EV 2 WEEKS(QOW)
     Route: 058

REACTIONS (11)
  - Rheumatoid arthritis [Unknown]
  - Injection site haemorrhage [Unknown]
  - Malaise [Not Recovered/Not Resolved]
  - Infection [Unknown]
  - COVID-19 [Unknown]
  - Product distribution issue [Unknown]
  - Therapy interrupted [Unknown]
  - Device malfunction [Unknown]
  - Product prescribing issue [Unknown]
  - Product dispensing error [Unknown]
  - Product dose omission issue [Unknown]

NARRATIVE: CASE EVENT DATE: 20230101
